FAERS Safety Report 5776170-X (Version None)
Quarter: 2008Q2

REPORT INFORMATION
  Report Type: 
  Country: None (occurrence: None)
  Receive Date: 20080613
  Receipt Date: 20080530
  Transmission Date: 20081010
  Serious: Yes (Other)
  Sender: FDA-Public Use
  Company Number: 2008S1009738

PATIENT
  Age: 87 Year
  Sex: Female

DRUGS (1)
  1. TEMERIT (NEBIVOLOL) [Suspect]
     Indication: HYPERTENSION

REACTIONS (12)
  - AMAUROSIS [None]
  - CHROMATOPSIA [None]
  - DYSPEPSIA [None]
  - DYSPNOEA [None]
  - FATIGUE [None]
  - FLATULENCE [None]
  - HEADACHE [None]
  - NIGHTMARE [None]
  - OEDEMA PERIPHERAL [None]
  - PARAESTHESIA [None]
  - RASH [None]
  - VISUAL DISTURBANCE [None]
